FAERS Safety Report 8890047 (Version 1)
Quarter: 2012Q4

REPORT INFORMATION
  Report Type: 
  Country: US (occurrence: US)
  Receive Date: 20121107
  Receipt Date: 20121107
  Transmission Date: 20130627
  Serious: No
  Sender: FDA-Public Use
  Company Number: US-PFIZER INC-2012275214

PATIENT
  Age: 46 Year
  Sex: Female

DRUGS (1)
  1. INLYTA [Suspect]
     Indication: NEOPLASM URINARY BLADDER
     Dosage: 5 mg, 1 tablet Twice a day
     Route: 048
     Dates: start: 20120904

REACTIONS (1)
  - Pharyngeal disorder [Unknown]
